FAERS Safety Report 13800642 (Version 2)
Quarter: 2018Q1

REPORT INFORMATION
  Report Type: Report from Study
  Country: FR (occurrence: FR)
  Receive Date: 20170727
  Receipt Date: 20180223
  Transmission Date: 20180508
  Serious: Yes (Hospitalization)
  Sender: FDA-Public Use
  Company Number: FR-ACTELION-A-CH2017-156915

PATIENT
  Age: 55 Year
  Sex: Male
  Weight: 78 kg

DRUGS (3)
  1. LEDAGA [Suspect]
     Active Substance: MECHLORETHAMINE HYDROCHLORIDE
     Dosage: UNK, QOD
     Route: 061
     Dates: start: 20170710, end: 20170907
  2. LEDAGA [Suspect]
     Active Substance: MECHLORETHAMINE HYDROCHLORIDE
     Indication: MYCOSIS FUNGOIDES
     Dosage: UNK, OD
     Route: 061
     Dates: start: 20170601, end: 20170629
  3. UNSPECIFIED INGREDIENT [Concomitant]
     Active Substance: UNSPECIFIED INGREDIENT
     Indication: MYCOSIS FUNGOIDES
     Dosage: ONCE A DAY
     Dates: start: 20170601

REACTIONS (10)
  - Superinfection [Recovering/Resolving]
  - Disease progression [Unknown]
  - Therapy partial responder [Unknown]
  - Lymphadenopathy [Recovering/Resolving]
  - Neoplasm skin [Unknown]
  - Drug intolerance [Unknown]
  - Skin irritation [Recovering/Resolving]
  - Burning sensation [Unknown]
  - Mycosis fungoides [Unknown]
  - Swelling face [Recovered/Resolved]

NARRATIVE: CASE EVENT DATE: 20170607
